FAERS Safety Report 5503617-6 (Version None)
Quarter: 2007Q4

REPORT INFORMATION
  Report Type: 
  Country: None (occurrence: None)
  Receive Date: 20071030
  Receipt Date: 20071019
  Transmission Date: 20080405
  Serious: Yes (Hospitalization)
  Sender: FDA-Public Use
  Company Number: 2007AL004492

PATIENT
  Age: 70 Year
  Sex: Female

DRUGS (3)
  1. VERAPAMIL HCL [Suspect]
     Indication: ATRIAL FIBRILLATION
     Dosage: 120 MG; QD; PO
     Route: 048
     Dates: start: 20051120, end: 20060221
  2. ACETYLSALICYLIC ACID SRT [Concomitant]
  3. BENDROFLUAZIDE [Concomitant]

REACTIONS (2)
  - PAIN IN EXTREMITY [None]
  - PARAESTHESIA ORAL [None]
